FAERS Safety Report 7382105-9 (Version None)
Quarter: 2011Q1

REPORT INFORMATION
  Report Type: 
  Country: None (occurrence: None)
  Receive Date: 20110329
  Receipt Date: 20110316
  Transmission Date: 20110831
  Serious: Yes (Other)
  Sender: FDA-Public Use
  Company Number: PHHY2011JP19829

PATIENT
  Age: 50 Year
  Sex: Male

DRUGS (2)
  1. TACROLIMUS [Concomitant]
  2. NEORAL [Suspect]
     Indication: ANGIOIMMUNOBLASTIC T-CELL LYMPHOMA

REACTIONS (4)
  - CYTOKINE STORM [None]
  - HYPERTENSION [None]
  - VENOOCCLUSIVE DISEASE [None]
  - HYPERTRIGLYCERIDAEMIA [None]
